FAERS Safety Report 10039694 (Version 1)
Quarter: 2014Q1

REPORT INFORMATION
  Report Type: Spontaneous
  Country: US (occurrence: US)
  Receive Date: 20140326
  Receipt Date: 20140326
  Transmission Date: 20141002
  Serious: Yes (Other)
  Sender: FDA-Public Use
  Company Number: US-JNJFOC-20140312203

PATIENT
  Age: 65 Year
  Sex: Female
  Weight: 97.52 kg

DRUGS (20)
  1. LEVAQUIN [Suspect]
     Indication: PNEUMONIA
     Route: 048
     Dates: start: 201401, end: 201401
  2. LEVAQUIN [Suspect]
     Indication: PNEUMONIA
     Route: 048
     Dates: start: 20140311
  3. LEVAQUIN [Suspect]
     Indication: PNEUMONIA
     Route: 048
     Dates: start: 2014, end: 2014
  4. PREDNISONE [Suspect]
     Indication: PNEUMONIA
     Dosage: 5MG DAILY
     Route: 048
     Dates: start: 201307
  5. PREDNISONE [Suspect]
     Indication: PNEUMONIA
     Route: 048
     Dates: start: 201401
  6. PREDNISONE [Suspect]
     Indication: LOCAL SWELLING
     Route: 048
     Dates: start: 201401
  7. PREDNISONE [Suspect]
     Indication: LOCAL SWELLING
     Dosage: 5MG DAILY
     Route: 048
     Dates: start: 201307
  8. PREDNISONE [Suspect]
     Indication: RHEUMATOID ARTHRITIS
     Route: 048
     Dates: start: 201401
  9. PREDNISONE [Suspect]
     Indication: RHEUMATOID ARTHRITIS
     Dosage: 5MG DAILY
     Route: 048
     Dates: start: 201307
  10. SPIRIVA [Concomitant]
     Indication: ASTHMA
     Route: 055
     Dates: start: 201307
  11. ADVAIR [Concomitant]
     Indication: ASTHMA
     Route: 065
     Dates: start: 2011
  12. FOLIC ACID [Concomitant]
     Indication: RHEUMATOID ARTHRITIS
     Route: 048
     Dates: start: 201307
  13. PRO AIR [Concomitant]
     Indication: ASTHMA
     Route: 055
  14. NEXIUM [Concomitant]
     Indication: GASTROOESOPHAGEAL REFLUX DISEASE
     Route: 048
  15. FUROSEMIDE [Concomitant]
     Indication: BLOOD PRESSURE
     Route: 048
     Dates: start: 201307
  16. IBUPROFEN [Concomitant]
     Indication: PAIN
     Route: 048
     Dates: start: 1998
  17. DUONEB [Concomitant]
     Indication: ASTHMA
     Route: 055
     Dates: start: 1997
  18. SINGULAIR [Concomitant]
     Indication: ASTHMA
     Route: 048
     Dates: start: 201401
  19. REMICADE [Concomitant]
     Indication: RHEUMATOID ARTHRITIS
     Route: 042
     Dates: start: 201311
  20. ALCOHOL [Concomitant]
     Indication: MUSCLE SPASMS
     Route: 065

REACTIONS (3)
  - Bronchitis [Not Recovered/Not Resolved]
  - Pneumonia [Not Recovered/Not Resolved]
  - Drug ineffective [Unknown]
